FAERS Safety Report 6512401-6 (Version None)
Quarter: 2009Q4

REPORT INFORMATION
  Report Type: 
  Country: None (occurrence: None)
  Receive Date: 20091217
  Receipt Date: 20091207
  Transmission Date: 20100525
  Serious: Yes (Other)
  Sender: FDA-Public Use
  Company Number: 001654

PATIENT
  Sex: Male
  Weight: 81.6475 kg

DRUGS (8)
  1. LACOSAMIDE [Suspect]
     Indication: COMPLEX PARTIAL SEIZURES
     Dosage: (50 MG BID ORAL), (150 MG QD ORAL)
     Route: 048
     Dates: start: 20090701, end: 20090828
  2. LACOSAMIDE [Suspect]
     Indication: COMPLEX PARTIAL SEIZURES
     Dosage: (50 MG BID ORAL), (150 MG QD ORAL)
     Route: 048
     Dates: start: 20090628
  3. TRILEPTAL [Concomitant]
  4. ZONISAMIDE [Concomitant]
  5. TOPAMAX [Concomitant]
  6. THORAZINE /00011902/ [Concomitant]
  7. DIAZEPAM [Concomitant]
  8. CLONIDINE [Concomitant]

REACTIONS (7)
  - ABDOMINAL PAIN UPPER [None]
  - BACK PAIN [None]
  - CHEST PAIN [None]
  - CONDITION AGGRAVATED [None]
  - CONVULSION [None]
  - DIZZINESS [None]
  - HEADACHE [None]
